FAERS Safety Report 13046069 (Version 1)
Quarter: 2016Q4

REPORT INFORMATION
  Report Type: Report from Study
  Country: CO (occurrence: CO)
  Receive Date: 20161220
  Receipt Date: 20161220
  Transmission Date: 20170207
  Serious: Yes (Other)
  Sender: FDA-Public Use
  Company Number: CO-JNJFOC-20161214900

PATIENT
  Age: 57 Year
  Sex: Female
  Weight: 67 kg

DRUGS (2)
  1. SIMPONI [Suspect]
     Active Substance: GOLIMUMAB
     Indication: SPONDYLOARTHROPATHY
     Route: 058
     Dates: start: 20161126
  2. SIMPONI [Suspect]
     Active Substance: GOLIMUMAB
     Indication: SPONDYLOARTHROPATHY
     Route: 058
     Dates: start: 20141226

REACTIONS (1)
  - Herpes zoster [Not Recovered/Not Resolved]

NARRATIVE: CASE EVENT DATE: 20161205
